FAERS Safety Report 26112214 (Version 1)
Quarter: 2025Q4

REPORT INFORMATION
  Report Type: Spontaneous
  Country: IN (occurrence: IN)
  Receive Date: 20251202
  Receipt Date: 20251202
  Transmission Date: 20260117
  Serious: Yes (Other)
  Sender: INCYTE
  Company Number: IN-002147023-NVSC2025IN176540

PATIENT

DRUGS (2)
  1. RUXOLITINIB [Suspect]
     Active Substance: RUXOLITINIB
     Indication: Allogenic stem cell transplantation
     Dosage: 10 MG, QD
  2. RUXOLITINIB [Suspect]
     Active Substance: RUXOLITINIB
     Dosage: 20 MG (OD)

REACTIONS (6)
  - Full blood count abnormal [Unknown]
  - Transaminases abnormal [Unknown]
  - Nausea [Unknown]
  - Mucosal inflammation [Unknown]
  - Anal fissure [Unknown]
  - Hypertension [Unknown]
